FAERS Safety Report 7265366-6 (Version None)
Quarter: 2011Q1

REPORT INFORMATION
  Report Type: 
  Country: None (occurrence: None)
  Receive Date: 20110131
  Receipt Date: 20110124
  Transmission Date: 20110831
  Serious: Yes (Hospitalization)
  Sender: FDA-Public Use
  Company Number: JP-ROCHE-694946

PATIENT
  Sex: Female
  Weight: 61 kg

DRUGS (50)
  1. TOCILIZUMAB [Suspect]
     Route: 041
     Dates: start: 20081119, end: 20081119
  2. TOCILIZUMAB [Suspect]
     Route: 041
     Dates: start: 20090520, end: 20090520
  3. TOCILIZUMAB [Suspect]
     Route: 041
     Dates: start: 20090617, end: 20090617
  4. CONIEL [Concomitant]
     Route: 048
  5. VOLTAREN [Concomitant]
     Route: 061
     Dates: start: 20080618, end: 20081107
  6. METHYCOBAL [Concomitant]
     Route: 048
     Dates: start: 20080910, end: 20081216
  7. FERO-GRADUMET [Concomitant]
     Route: 048
     Dates: start: 20080924, end: 20081014
  8. CINAL [Concomitant]
     Dosage: FORM: PERORAL AGENT
     Route: 048
     Dates: start: 20080924, end: 20081014
  9. LOXONIN [Concomitant]
     Dosage: FORM: TAPE, DOSAGE ADJUSTED
     Route: 061
     Dates: start: 20081030, end: 20081216
  10. RHEUMATREX [Concomitant]
     Route: 048
     Dates: end: 20091013
  11. TOCILIZUMAB [Suspect]
     Route: 041
     Dates: start: 20081217, end: 20081217
  12. TOCILIZUMAB [Suspect]
     Route: 041
     Dates: start: 20090715, end: 20090715
  13. RHEUMATREX [Concomitant]
     Route: 048
     Dates: start: 20100412
  14. ONEALFA [Concomitant]
     Dosage: FORM: PERORAL AGENT
     Route: 048
  15. KETOPROFEN [Concomitant]
     Dosage: FORM: TAPE
     Route: 061
     Dates: start: 20080618, end: 20081029
  16. LAMISIL [Concomitant]
     Route: 003
  17. MUCOSTA [Concomitant]
     Route: 048
     Dates: end: 20100712
  18. TOCILIZUMAB [Suspect]
     Route: 041
     Dates: start: 20080910, end: 20080910
  19. TOCILIZUMAB [Suspect]
     Route: 041
     Dates: start: 20090114, end: 20090114
  20. TOCILIZUMAB [Suspect]
     Route: 041
     Dates: start: 20090218, end: 20090218
  21. TOCILIZUMAB [Suspect]
     Route: 041
     Dates: start: 20090415, end: 20090415
  22. RHEUMATREX [Concomitant]
     Route: 048
     Dates: start: 20081217
  23. BLOPRESS [Concomitant]
     Route: 048
  24. BONALON [Concomitant]
     Route: 048
     Dates: end: 20100510
  25. PL [Concomitant]
     Route: 048
     Dates: start: 20081225, end: 20081230
  26. TOCILIZUMAB [Suspect]
     Route: 041
     Dates: start: 20080716, end: 20080716
  27. TOCILIZUMAB [Suspect]
     Route: 041
     Dates: start: 20080813, end: 20080813
  28. TOCILIZUMAB [Suspect]
     Route: 041
     Dates: start: 20090930, end: 20090930
  29. RHEUMATREX [Concomitant]
     Route: 048
     Dates: end: 20081013
  30. MAGLAX [Concomitant]
     Dosage: FORM: PERORAL AGENT
     Route: 048
  31. RHEUMATREX [Concomitant]
     Route: 048
     Dates: start: 20081024, end: 20081216
  32. TOCILIZUMAB [Suspect]
     Indication: RHEUMATOID ARTHRITIS
     Route: 041
     Dates: start: 20080618, end: 20080618
  33. RHEUMATREX [Concomitant]
     Route: 048
     Dates: start: 20081024, end: 20081216
  34. PREDNISOLONE [Concomitant]
     Route: 048
     Dates: start: 20100604, end: 20100101
  35. FOLIAMIN [Concomitant]
     Route: 048
     Dates: end: 20100412
  36. LIPITOR [Concomitant]
     Route: 048
     Dates: end: 20100503
  37. TAKEPRON [Concomitant]
     Route: 048
     Dates: end: 20100721
  38. PREDNISOLONE [Concomitant]
     Dosage: FORM: PERORAL AGENT
     Route: 048
  39. PREDNISOLONE [Concomitant]
     Route: 048
     Dates: start: 20100101
  40. LORCAM [Concomitant]
     Dosage: TAKEN AS NEEDED 4 MG A DAY
     Route: 048
     Dates: start: 20081017, end: 20081216
  41. LENDORMIN [Concomitant]
     Route: 048
     Dates: start: 20081103, end: 20081216
  42. TOCILIZUMAB [Suspect]
     Route: 041
     Dates: start: 20090318, end: 20090318
  43. TOCILIZUMAB [Suspect]
     Route: 041
     Dates: start: 20091028, end: 20091028
  44. PREDNISOLONE [Concomitant]
     Route: 048
     Dates: start: 20100409, end: 20100601
  45. MOBIC [Concomitant]
     Route: 048
  46. TOCILIZUMAB [Suspect]
     Route: 041
     Dates: start: 20090812, end: 20090812
  47. TOCILIZUMAB [Suspect]
     Route: 041
     Dates: start: 20091202, end: 20091202
  48. TOCILIZUMAB [Suspect]
     Route: 041
     Dates: start: 20100127, end: 20100127
  49. PREDNISOLONE [Concomitant]
     Route: 048
     Dates: end: 20100408
  50. RHEUMATREX [Concomitant]
     Route: 048
     Dates: start: 20081217

REACTIONS (3)
  - CELLULITIS [None]
  - GLOMERULONEPHRITIS [None]
  - CYTOMEGALOVIRUS INFECTION [None]
